FAERS Safety Report 8668655 (Version 4)
Quarter: 2013Q4

REPORT INFORMATION
  Report Type: Report from Study
  Country: RU (occurrence: RU)
  Receive Date: 20120717
  Receipt Date: 20131226
  Transmission Date: 20140711
  Serious: Yes (Other)
  Sender: FDA-Public Use
  Company Number: RU-MSD-2012SP030964

PATIENT
  Age: 32 Year
  Sex: Female
  Weight: 62 kg

DRUGS (8)
  1. BOCEPREVIR [Suspect]
     Indication: CHRONIC HEPATITIS C
     Dosage: 800 MG, TID
     Route: 048
     Dates: start: 20120327, end: 20120430
  2. BOCEPREVIR [Suspect]
     Dosage: 800 MG, TID
     Route: 048
     Dates: start: 20120514
  3. PEGINTRON [Suspect]
     Indication: CHRONIC HEPATITIS C
     Dosage: 96 MCG (0.4ML), QW
     Route: 058
     Dates: start: 20120227, end: 20120327
  4. PEGINTRON [Suspect]
     Dosage: 80 MICROGRAM, UNK
     Route: 058
     Dates: start: 20120327, end: 20120430
  5. PEGINTRON [Suspect]
     Dosage: 80 MCG, QW
     Route: 058
     Dates: start: 20120514
  6. RIBAVIRIN [Suspect]
     Indication: CHRONIC HEPATITIS C
     Dosage: 400 MG, BID
     Route: 048
     Dates: start: 20120227, end: 20120419
  7. RIBAVIRIN [Suspect]
     Dosage: 200 MG MORNING - 400 MG EVENING
     Route: 048
     Dates: start: 20120419, end: 20120430
  8. RIBAVIRIN [Suspect]
     Dosage: 400 MG, BID
     Route: 048
     Dates: start: 20120514

REACTIONS (1)
  - Neutropenia [Recovered/Resolved]
